FAERS Safety Report 21779882 (Version 2)
Quarter: 2023Q1

REPORT INFORMATION
  Report Type: Spontaneous
  Country: AR (occurrence: AR)
  Receive Date: 20221226
  Receipt Date: 20230216
  Transmission Date: 20230417
  Serious: Yes (Other)
  Sender: FDA-Public Use
  Company Number: AR-PFIZER INC-PV202200069754

PATIENT
  Age: 80 Year
  Sex: Male

DRUGS (1)
  1. VYNDAMAX [Suspect]
     Active Substance: TAFAMIDIS
     Indication: Restrictive cardiomyopathy
     Dosage: 61 MG, DAILY

REACTIONS (3)
  - Amyloidosis [Unknown]
  - Off label use [Unknown]
  - Product prescribing error [Unknown]
